FAERS Safety Report 14621985 (Version 2)
Quarter: 2018Q3

REPORT INFORMATION
  Report Type: Other
  Country: ES (occurrence: ES)
  Receive Date: 20180310
  Receipt Date: 20180713
  Transmission Date: 20181010
  Serious: Yes (Other)
  Sender: FDA-Public Use
  Company Number: ES-VALIDUS PHARMACEUTICALS LLC-ES-2018VAL000468

PATIENT
  Age: 95 Year
  Sex: Male

DRUGS (4)
  1. FUROSEMIDE. [Suspect]
     Active Substance: FUROSEMIDE
     Indication: URINARY TRACT INFECTION
     Dosage: 20 MG, UNK
     Route: 042
     Dates: start: 20170906, end: 20170916
  2. SINTROM [Suspect]
     Active Substance: ACENOCOUMAROL
     Dosage: UNK; QW
     Route: 048
     Dates: start: 2017
  3. CEFTRIAXONE. [Suspect]
     Active Substance: CEFTRIAXONE
     Indication: URINARY TRACT INFECTION
     Dosage: 2 G, QD
     Route: 042
     Dates: start: 20170829, end: 20170905
  4. SINTROM [Suspect]
     Active Substance: ACENOCOUMAROL
     Indication: ATRIAL FIBRILLATION
     Dosage: 11 MG, QW
     Route: 048
     Dates: start: 20150420

REACTIONS (2)
  - Hypocoagulable state [Recovered/Resolved]
  - Drug interaction [Recovered/Resolved]

NARRATIVE: CASE EVENT DATE: 20170907
